FAERS Safety Report 7584394-4 (Version None)
Quarter: 2011Q2

REPORT INFORMATION
  Report Type: 
  Country: None (occurrence: None)
  Receive Date: 20110630
  Receipt Date: 20110628
  Transmission Date: 20111010
  Serious: No
  Sender: FDA-Public Use
  Company Number: US-PFIZER INC-2011110592

PATIENT
  Sex: Female
  Weight: 82 kg

DRUGS (2)
  1. NAPROXEN (ALEVE) [Suspect]
     Dosage: UNK
  2. CHANTIX [Suspect]
     Indication: SMOKING CESSATION THERAPY
     Dosage: 0.5 MG, UNK
     Route: 048
     Dates: start: 20101220, end: 20101222

REACTIONS (1)
  - NAUSEA [None]
